FAERS Safety Report 7961490-0 (Version None)
Quarter: 2011Q4

REPORT INFORMATION
  Report Type: 
  Country: None (occurrence: None)
  Receive Date: 20111202
  Receipt Date: 20111202
  Transmission Date: 20120403
  Serious: Yes (Other)
  Sender: FDA-Public Use
  Company Number: None

PATIENT
  Age: 76 Year
  Sex: Male

DRUGS (4)
  1. LEVOTHROID [Concomitant]
  2. HYDROCODONE BITARTRATE AND ACETAMINOPHEN [Concomitant]
  3. REVLIMID [Suspect]
     Indication: MULTIPLE MYELOMA
     Dosage: REVLIMID 15 MG DAILY X21D/28D ORALLY
     Route: 048
     Dates: start: 20100901, end: 20110701
  4. REVLIMID [Suspect]
     Dosage: REVLIMID 10 MG DAILY X21D/28D ORALLY
     Route: 048

REACTIONS (3)
  - MULTIPLE MYELOMA [None]
  - DRUG RESISTANCE [None]
  - NEOPLASM PROGRESSION [None]
